FAERS Safety Report 10244188 (Version 1)
Quarter: 2014Q2

REPORT INFORMATION
  Report Type: Spontaneous
  Country: US (occurrence: None)
  Receive Date: 20140616
  Receipt Date: 20140616
  Transmission Date: 20141212
  Serious: Yes (Life-Threatening)
  Sender: FDA-Public Use
  Company Number: None

PATIENT
  Age: 28 Year
  Sex: Male
  Weight: 97.52 kg

DRUGS (2)
  1. CLONAZEPAM 1 MG [Suspect]
     Indication: ANXIETY
     Dosage: 1 PILL ONCE DAILY TAKEN BY MOUTH
     Route: 048
     Dates: start: 20140604, end: 20140607
  2. CLONAZEPAM 1 MG [Suspect]
     Dosage: 1 PILL ONCE DAILY TAKEN BY MOUTH
     Route: 048
     Dates: start: 20140604, end: 20140607

REACTIONS (7)
  - Alcohol use [None]
  - Irritability [None]
  - Aggression [None]
  - Physical assault [None]
  - Laceration [None]
  - Overdose [None]
  - Legal problem [None]
